FAERS Safety Report 23192662 (Version 2)
Quarter: 2023Q4

REPORT INFORMATION
  Report Type: Spontaneous
  Country: US (occurrence: US)
  Receive Date: 20231116
  Receipt Date: 20231123
  Transmission Date: 20240109
  Serious: No
  Sender: FDA-Public Use
  Company Number: US-SA-SAC20231114000283

PATIENT
  Age: 6 Year
  Sex: Female
  Weight: 20.41 kg

DRUGS (14)
  1. DUPIXENT [Suspect]
     Active Substance: DUPILUMAB
     Indication: Dermatitis atopic
     Dosage: 300MG, Q4W
     Route: 058
     Dates: start: 20230517, end: 2023
  2. PIMECROLIMUS [Concomitant]
     Active Substance: PIMECROLIMUS
     Dosage: UNK
  3. CLOBETASOL [Concomitant]
     Active Substance: CLOBETASOL
     Dosage: UNK
  4. SAMBUCUS NIGRA;ZINC [Concomitant]
     Dosage: UNK
  5. VITAMIN D NOS [Concomitant]
     Active Substance: VITAMIN D NOS
     Dosage: UNK
  6. WILD CHERRY BARK [Concomitant]
     Active Substance: WILD CHERRY BARK
     Dosage: UNK
  7. ECHINACEA [ECHINACEA PURPUREA] [Concomitant]
     Dosage: UNK
  8. FENUGREEK LEAF\HERBALS [Concomitant]
     Active Substance: FENUGREEK LEAF\HERBALS
  9. CINNAMON [CINNAMOMUM VERUM] [Concomitant]
     Dosage: UNK
  10. DANDELION [Concomitant]
     Active Substance: TARAXACUM OFFICINALE POLLEN
     Dosage: UNK
  11. FEVERFEW\TANACETUM PARTHENIUM [Concomitant]
     Active Substance: FEVERFEW\TANACETUM PARTHENIUM
     Dosage: UNK
  12. GINGER [Concomitant]
     Active Substance: GINGER
     Dosage: UNK
  13. MULLEIN [Concomitant]
     Dosage: UNK
  14. RHODIOLA [RHODIOLA ROSEA] [Concomitant]
     Dosage: UNK

REACTIONS (2)
  - Feeling abnormal [Unknown]
  - Rash [Not Recovered/Not Resolved]

NARRATIVE: CASE EVENT DATE: 20230101
